FAERS Safety Report 5192137-7 (Version None)
Quarter: 2006Q4

REPORT INFORMATION
  Report Type: 
  Country: None (occurrence: None)
  Receive Date: 20061227
  Receipt Date: 20061215
  Transmission Date: 20070319
  Serious: Yes (Other)
  Sender: FDA-Public Use
  Company Number: US-PURDUE-USA_2006_0026034

PATIENT
  Sex: Female
  Weight: 61 kg

DRUGS (1)
  1. OXYCONTIN [Suspect]
     Indication: PAIN
     Dates: start: 20030131, end: 20031001

REACTIONS (2)
  - DEAFNESS [None]
  - DRUG DEPENDENCE [None]
